FAERS Safety Report 6156823-4 (Version None)
Quarter: 2009Q2

REPORT INFORMATION
  Report Type: 
  Country: None (occurrence: None)
  Receive Date: 20090413
  Receipt Date: 20090107
  Transmission Date: 20091009
  Serious: No
  Sender: FDA-Public Use
  Company Number: 2009BM000001

PATIENT
  Age: 33 Year
  Sex: Female
  Weight: 57.1532 kg

DRUGS (10)
  1. KUVAN [Suspect]
     Indication: PHENYLKETONURIA
     Dosage: 300 MG;QD;PO
     Route: 048
     Dates: start: 20081111, end: 20081122
  2. AMINO ACIDS [Concomitant]
  3. CARBOHYDRATES/MINERALS [Concomitant]
  4. VITAMINS [Concomitant]
  5. LITHIUM CARBONATE [Concomitant]
  6. TRAZODONE HCL [Concomitant]
  7. LORAZEPAM [Concomitant]
  8. NAPROXEN [Concomitant]
  9. ALBUTEROL [Concomitant]
  10. FLOVENT [Concomitant]

REACTIONS (2)
  - GASTRIC ULCER [None]
  - HEADACHE [None]
